FAERS Safety Report 5770272-X (Version None)
Quarter: 2008Q2

REPORT INFORMATION
  Report Type: 
  Country: None (occurrence: None)
  Receive Date: 20080613
  Receipt Date: 20080427
  Transmission Date: 20081010
  Serious: No
  Sender: FDA-Public Use
  Company Number: US-ABBOTT-08P-163-0449448-00

PATIENT
  Sex: Female
  Weight: 106.69 kg

DRUGS (8)
  1. HUMIRA [Suspect]
     Indication: CROHN'S DISEASE
     Route: 058
  2. HUMIRA [Suspect]
     Route: 058
     Dates: start: 20080425, end: 20080425
  3. HUMIRA [Suspect]
     Route: 058
  4. SULFASALAZINE [Concomitant]
     Indication: DRUG USE FOR UNKNOWN INDICATION
     Dosage: 500 MG - TAKE 2 PILLS QID
     Route: 048
  5. ESOMEPRAZOLE MAGNESIUM [Concomitant]
     Indication: DYSPEPSIA
     Route: 048
  6. ALPRAZOLAM [Concomitant]
     Indication: ANXIETY
     Route: 048
  7. VENLAFAXINE HCL [Concomitant]
     Indication: DRUG USE FOR UNKNOWN INDICATION
     Route: 048
  8. LOMOTIL [Concomitant]
     Indication: DIARRHOEA
     Route: 048

REACTIONS (2)
  - BACK PAIN [None]
  - SCIATICA [None]
